FAERS Safety Report 11076106 (Version 1)
Quarter: 2015Q2

REPORT INFORMATION
  Report Type: Spontaneous
  Country: US (occurrence: US)
  Receive Date: 20150429
  Receipt Date: 20150429
  Transmission Date: 20150821
  Serious: No
  Sender: FDA-Public Use
  Company Number: US-PFIZER INC-2015140381

PATIENT
  Sex: Female
  Weight: 98 kg

DRUGS (1)
  1. GABAPENTIN. [Suspect]
     Active Substance: GABAPENTIN
     Indication: NEURALGIA
     Dosage: UNK
     Dates: start: 2000, end: 2011

REACTIONS (6)
  - Gait disturbance [Unknown]
  - Aphonia [Unknown]
  - Nausea [Unknown]
  - Product use issue [Unknown]
  - Dyspnoea [Unknown]
  - Feeling abnormal [Unknown]

NARRATIVE: CASE EVENT DATE: 2002
